FAERS Safety Report 16204981 (Version 2)
Quarter: 2019Q3

REPORT INFORMATION
  Report Type: Spontaneous
  Country: US (occurrence: US)
  Receive Date: 20190416
  Receipt Date: 20190716
  Transmission Date: 20191004
  Serious: No
  Sender: FDA-Public Use
  Company Number: US-CHILTERN-US-2019-000406

PATIENT
  Age: 79 Year
  Sex: Male

DRUGS (4)
  1. RHOPRESSA [Suspect]
     Active Substance: NETARSUDIL MESYLATE
     Indication: GLAUCOMA
     Dosage: 1 GTT, LEFT EYE NIGHTLY
     Route: 047
     Dates: start: 20180809, end: 20190207
  2. LUMIGAN [Concomitant]
     Active Substance: BIMATOPROST
     Indication: GLAUCOMA
     Dosage: 1 GTT, UNK, LEFT EYE, STARTED 6 YERAS AGO
     Route: 047
  3. AZOPT [Concomitant]
     Active Substance: BRINZOLAMIDE
     Indication: GLAUCOMA
     Dosage: 1 GTT, UNK, LEFT EYE, STARTED 6 YEARS AGO
     Route: 047
  4. COMBIGAN [Concomitant]
     Active Substance: BRIMONIDINE TARTRATE\TIMOLOL MALEATE
     Indication: GLAUCOMA
     Dosage: 1 GTT, UNK, STARTED 6 YEARS AGO,
     Route: 047

REACTIONS (3)
  - Visual acuity reduced [Unknown]
  - Ulcerative keratitis [Recovered/Resolved]
  - Corneal scar [Not Recovered/Not Resolved]

NARRATIVE: CASE EVENT DATE: 20190207
